FAERS Safety Report 7611430-9 (Version None)
Quarter: 2011Q3

REPORT INFORMATION
  Report Type: 
  Country: None (occurrence: None)
  Receive Date: 20110707
  Receipt Date: 20110629
  Transmission Date: 20111222
  Serious: Yes (Other)
  Sender: FDA-Public Use
  Company Number: 2011SP030654

PATIENT
  Sex: Female

DRUGS (1)
  1. CLARITIN-D [Suspect]
     Indication: MULTIPLE ALLERGIES
     Dosage: 10 MG, ONCE, PO
     Route: 048
     Dates: start: 20110628

REACTIONS (2)
  - LIP SWELLING [None]
  - FOOD ALLERGY [None]
